FAERS Safety Report 5235151-5 (Version None)
Quarter: 2007Q1

REPORT INFORMATION
  Report Type: 
  Country: None (occurrence: None)
  Receive Date: 20070207
  Receipt Date: 20070124
  Transmission Date: 20070707
  Serious: Yes (Hospitalization)
  Sender: FDA-Public Use
  Company Number: 235536

PATIENT
  Age: 57 Year
  Sex: Male
  Weight: 68.2 kg

DRUGS (15)
  1. AVASTIN [Suspect]
     Indication: COLORECTAL CANCER
     Dosage: 497 MG, Q3W, INTRAVENOUS
     Route: 042
     Dates: start: 20060914
  2. CAPECITABINE (CAPECITABINE) [Suspect]
     Indication: COLORECTAL CANCER
     Dosage: 3600 MG QD ORAL
     Route: 048
     Dates: start: 20060914, end: 20070111
  3. OXALIPLATIN [Suspect]
     Indication: COLORECTAL CANCER
     Dosage: 227 MG, Q3W, INTRAVENOUS
     Route: 042
     Dates: start: 20060914
  4. OXYCODONE HCL [Concomitant]
  5. LOXONIN (LOXOPROFEN SODIUM) [Concomitant]
  6. NORVASC [Concomitant]
  7. BLOPRESS (CANDESARTAN CILEXETIL) [Concomitant]
  8. PURSENNID (SENNOSIDES) [Concomitant]
  9. LAXOBERON (SODIUM PICOSULFATE) [Concomitant]
  10. LECICARBON (LECITHIN, SODIUM BICARBONATE, SODIUM PHOSPHATE, MONOBASIC) [Concomitant]
  11. CEFCAPENE PIVOXIL HYDROCHLORIDE (CEFCAPENE PIVOXIL HYDROCHLORIDE) [Concomitant]
  12. AZUNOL (SODIUM GUALENATE) [Concomitant]
  13. KYTRIL [Concomitant]
  14. DECADRON [Concomitant]
  15. KENALOG [Concomitant]

REACTIONS (5)
  - BLOOD GLUCOSE INCREASED [None]
  - HAEMATOCRIT DECREASED [None]
  - HAEMOGLOBIN DECREASED [None]
  - RECTAL STENOSIS [None]
  - RED BLOOD CELL COUNT DECREASED [None]
